FAERS Safety Report 21000577 (Version 1)
Quarter: 2022Q2

REPORT INFORMATION
  Report Type: Spontaneous
  Country: US (occurrence: US)
  Receive Date: 20220623
  Receipt Date: 20220623
  Transmission Date: 20220721
  Serious: Yes (Other)
  Sender: FDA-Public Use
  Company Number: US-C B Fleet Co Inc-202206-US-001879

PATIENT
  Sex: Female

DRUGS (1)
  1. MONISTAT TIOCONAZOLE 1 [Suspect]
     Active Substance: TIOCONAZOLE
     Indication: Bacterial infection
     Dosage: USED ONCE
     Route: 067

REACTIONS (4)
  - Abortion spontaneous [Recovered/Resolved]
  - Vulvovaginal burning sensation [Recovered/Resolved]
  - Product use in unapproved indication [None]
  - Exposure during pregnancy [None]

NARRATIVE: CASE EVENT DATE: 20220606
